FAERS Safety Report 6659696-6 (Version None)
Quarter: 2010Q1

REPORT INFORMATION
  Report Type: 
  Country: None (occurrence: None)
  Receive Date: 20100330
  Receipt Date: 20100317
  Transmission Date: 20100710
  Serious: Yes (Hospitalization, Other)
  Sender: FDA-Public Use
  Company Number: PHHY2010JP16752

PATIENT
  Sex: Male
  Weight: 45 kg

DRUGS (6)
  1. BLINDED DIOVAN T30230+TAB+HY [Suspect]
     Dosage: 80 MG, UNK
     Route: 048
     Dates: start: 20081121, end: 20091223
  2. BLINDED NO TREATMENT RECEIVED NOMED [Suspect]
     Dosage: 80 MG, UNK
     Route: 048
     Dates: start: 20081121, end: 20091223
  3. BLINDED DIOVAN T30230+TAB+HY [Suspect]
     Dosage: 160 MG, UNK
     Route: 048
     Dates: start: 20091224
  4. BLINDED NO TREATMENT RECEIVED NOMED [Suspect]
     Dosage: 160 MG, UNK
     Route: 048
     Dates: start: 20091224
  5. AMLODIPINE [Concomitant]
     Indication: HYPERTENSION
     Dosage: 5 MG, UNK
     Route: 048
     Dates: start: 20070630
  6. CARVEDILOL [Concomitant]
     Indication: HYPERTENSION
     Dosage: 20 MG, UNK
     Route: 048
     Dates: start: 20080814, end: 20091108

REACTIONS (2)
  - GASTRECTOMY [None]
  - GASTRIC CANCER [None]
